FAERS Safety Report 11136746 (Version 1)
Quarter: 2015Q2

REPORT INFORMATION
  Report Type: Spontaneous
  Country: US (occurrence: US)
  Receive Date: 20150526
  Receipt Date: 20150526
  Transmission Date: 20150821
  Serious: Yes (Other)
  Sender: FDA-Public Use
  Company Number: US-PURDUE-USA-2015-0123209

PATIENT
  Age: 82 Year
  Sex: Female

DRUGS (3)
  1. HYDROCODONE [Concomitant]
     Active Substance: HYDROCODONE
     Indication: BREAKTHROUGH PAIN
     Dosage: UNK, Q4H
     Route: 048
     Dates: start: 2009
  2. HYSINGLA ER [Suspect]
     Active Substance: HYDROCODONE BITARTRATE
     Indication: OSTEOARTHRITIS
     Dosage: 20 MG, Q24H
     Route: 048
     Dates: start: 20150430
  3. HYSINGLA ER [Suspect]
     Active Substance: HYDROCODONE BITARTRATE
     Indication: PAIN

REACTIONS (3)
  - Choking [Recovered/Resolved]
  - Drug effect decreased [Unknown]
  - Retching [Unknown]

NARRATIVE: CASE EVENT DATE: 20150430
